FAERS Safety Report 13836374 (Version 1)
Quarter: 2017Q3

REPORT INFORMATION
  Report Type: Spontaneous
  Country: ES (occurrence: ES)
  Receive Date: 20170804
  Receipt Date: 20170804
  Transmission Date: 20171127
  Serious: Yes (Other)
  Sender: FDA-Public Use
  Company Number: PHHY2017ES110934

PATIENT
  Age: 66 Year
  Sex: Female

DRUGS (2)
  1. AZARGA [Suspect]
     Active Substance: BRINZOLAMIDE\TIMOLOL MALEATE
     Indication: OCULAR HYPERTENSION
     Dosage: UNK
     Route: 047
     Dates: start: 20170301
  2. OSTEOPOR [Concomitant]
     Indication: OSTEOPOROSIS
     Dosage: 1 DF, QD
     Route: 048
     Dates: start: 20170525, end: 20170717

REACTIONS (4)
  - Abnormal sensation in eye [Not Recovered/Not Resolved]
  - Scleral discolouration [Not Recovered/Not Resolved]
  - Ocular hyperaemia [Not Recovered/Not Resolved]
  - Dry eye [Not Recovered/Not Resolved]

NARRATIVE: CASE EVENT DATE: 20170615
